FAERS Safety Report 11219896 (Version 2)
Quarter: 2015Q3

REPORT INFORMATION
  Report Type: Spontaneous
  Country: JP (occurrence: JP)
  Receive Date: 20150625
  Receipt Date: 20150707
  Transmission Date: 20151125
  Serious: Yes (Hospitalization, Other)
  Sender: FDA-Public Use
  Company Number: JP-009507513-1506JPN010723

PATIENT
  Age: 80 Year
  Sex: Female

DRUGS (3)
  1. MK-0000 (001) [Suspect]
     Active Substance: DEXAMETHASONE
     Dosage: UNK
  2. PREDNISOLONE. [Concomitant]
     Active Substance: PREDNISOLONE
     Indication: RHEUMATOID ARTHRITIS
     Dosage: DAILY DOSAGE UNKNOWN
     Route: 048
  3. ALENDRONATE SODIUM. [Suspect]
     Active Substance: ALENDRONATE SODIUM
     Indication: OSTEOPOROSIS
     Dosage: DAILY DOSAGE UNKNOWN

REACTIONS (2)
  - Abscess neck [Recovering/Resolving]
  - Osteonecrosis of jaw [Recovering/Resolving]
